FAERS Safety Report 4874044-X (Version None)
Quarter: 2006Q1

REPORT INFORMATION
  Report Type: 
  Country: None (occurrence: None)
  Receive Date: 20060104
  Receipt Date: 20051221
  Transmission Date: 20060701
  Serious: Yes (Hospitalization, Other)
  Sender: FDA-Public Use
  Company Number: 2005172500

PATIENT
  Age: 55 Year
  Sex: Male

DRUGS (20)
  1. VIAGRA [Suspect]
     Indication: ERECTILE DYSFUNCTION
     Dosage: 50 MG AS NEEDED
     Dates: start: 20040101
  2. ATIVAN [Concomitant]
  3. XANAX [Concomitant]
  4. KLONOPIN [Concomitant]
  5. COLACE (DOCUSATE SODIUM) [Concomitant]
  6. LAMICTAL [Concomitant]
  7. MAG-OX (MAGNESIUM OXIDE) [Concomitant]
  8. PROGRAF [Concomitant]
  9. PROTONIX [Concomitant]
  10. CYMBALTA [Concomitant]
  11. PROZAC [Concomitant]
  12. SENOKOT [Concomitant]
  13. SULFAMETHOXAZOLE + TRIMETHOPRIM [Concomitant]
  14. NORVASC [Concomitant]
  15. AMBIEN [Concomitant]
  16. B COMPLEX (NICOTINAMIDE, PYRIDOXINE HYDROCHLORIDE, RIBOFLAVIN, THIAMIN [Concomitant]
  17. VITAMIN B-12 [Concomitant]
  18. CENTRUM (MINERALS NOS, VITAMINS NOS) [Concomitant]
  19. MILK THISTLE (SILYMARIN) [Concomitant]
  20. PREDNISONE [Concomitant]

REACTIONS (19)
  - ABDOMINAL DISTENSION [None]
  - BLOOD GLUCOSE INCREASED [None]
  - CONTUSION [None]
  - DRUG INEFFECTIVE [None]
  - GASTROINTESTINAL DISORDER [None]
  - GRAND MAL CONVULSION [None]
  - INCISION SITE COMPLICATION [None]
  - JOINT INJURY [None]
  - LIVER TRANSPLANT [None]
  - LOSS OF CONSCIOUSNESS [None]
  - MEMORY IMPAIRMENT [None]
  - OCULAR ICTERUS [None]
  - PROCEDURAL COMPLICATION [None]
  - RENAL FAILURE ACUTE [None]
  - ROAD TRAFFIC ACCIDENT [None]
  - SCAR [None]
  - SKIN ATROPHY [None]
  - WEIGHT INCREASED [None]
  - YELLOW SKIN [None]
